FAERS Safety Report 6532667-6 (Version None)
Quarter: 2010Q1

REPORT INFORMATION
  Report Type: 
  Country: None (occurrence: None)
  Receive Date: 20100111
  Receipt Date: 20100106
  Transmission Date: 20100710
  Serious: Yes (Life-Threatening)
  Sender: FDA-Public Use
  Company Number: FR-ASTRAZENECA-2010SE00451

PATIENT
  Age: 77 Year
  Sex: Male

DRUGS (13)
  1. TENORMIN [Suspect]
     Route: 048
     Dates: start: 20091102, end: 20091102
  2. COVERSYL [Suspect]
     Route: 048
     Dates: start: 20091101, end: 20091102
  3. LOXEN [Suspect]
     Route: 048
     Dates: start: 20091101, end: 20091103
  4. LIPANTHYL [Suspect]
     Route: 048
     Dates: start: 20091101, end: 20091102
  5. HEPARINOTHERAPY [Concomitant]
     Route: 042
     Dates: start: 20091031
  6. PLAVIX [Concomitant]
     Route: 048
     Dates: start: 20091101
  7. ASPEGIC 1000 [Concomitant]
     Route: 048
     Dates: start: 20091102
  8. GLUCOPHAGE [Concomitant]
     Indication: TYPE 2 DIABETES MELLITUS
     Route: 048
  9. DIAMICRON [Concomitant]
     Indication: TYPE 2 DIABETES MELLITUS
     Route: 048
  10. VASTAREL [Concomitant]
  11. LEXOMIL [Concomitant]
  12. DAFALGAN [Concomitant]
  13. LIPANOR [Concomitant]
     Indication: DYSLIPIDAEMIA

REACTIONS (5)
  - ANURIA [None]
  - BRADYCARDIA [None]
  - RENAL FAILURE ACUTE [None]
  - THROMBOCYTOPENIA [None]
  - TRANSAMINASES INCREASED [None]
